FAERS Safety Report 15898117 (Version 1)
Quarter: 2019Q1

REPORT INFORMATION
  Report Type: Report from Study
  Country: US (occurrence: US)
  Receive Date: 20190201
  Receipt Date: 20190201
  Transmission Date: 20190417
  Serious: Yes (Other)
  Sender: FDA-Public Use
  Company Number: US-BRISTOL-MYERS SQUIBB COMPANY-BMS-2019-006721

PATIENT
  Sex: Male

DRUGS (1)
  1. NIVOLUMAB [Suspect]
     Active Substance: NIVOLUMAB
     Indication: HEPATOCELLULAR CARCINOMA
     Dosage: UNK, Q2WK
     Route: 042

REACTIONS (11)
  - Weight decreased [Unknown]
  - Feeling of body temperature change [Unknown]
  - Dyspnoea [Unknown]
  - Feeling abnormal [Unknown]
  - Decreased appetite [Recovering/Resolving]
  - Constipation [Unknown]
  - Nausea [Unknown]
  - Fatigue [Unknown]
  - Chest pain [Unknown]
  - Hyperhidrosis [Unknown]
  - Abdominal pain upper [Unknown]
